FAERS Safety Report 15367851 (Version 2)
Quarter: 2018Q3

REPORT INFORMATION
  Report Type: Report from Study
  Country: TW (occurrence: TW)
  Receive Date: 20180910
  Receipt Date: 20180918
  Transmission Date: 20181010
  Serious: Yes (Hospitalization, Other)
  Sender: FDA-Public Use
  Company Number: TW-CELGENEUS-TWN-20180900345

PATIENT
  Age: 67 Year
  Sex: Female

DRUGS (3)
  1. CARBOPLATIN. [Suspect]
     Active Substance: CARBOPLATIN
     Indication: TRIPLE NEGATIVE BREAST CANCER
     Dosage: 153 MILLIGRAM
     Route: 041
     Dates: start: 20180528, end: 20180718
  2. MPDL3280A (ATEZOLIZUMAB) [Suspect]
     Active Substance: ATEZOLIZUMAB
     Indication: TRIPLE NEGATIVE BREAST CANCER
     Dosage: 1200 MILLIGRAM
     Route: 041
     Dates: start: 20180528, end: 20180712
  3. ABRAXANE [Suspect]
     Active Substance: PACLITAXEL
     Indication: TRIPLE NEGATIVE BREAST CANCER
     Dosage: 185 MILLIGRAM
     Route: 041
     Dates: start: 20180528, end: 20180627

REACTIONS (1)
  - Autoimmune myocarditis [Not Recovered/Not Resolved]

NARRATIVE: CASE EVENT DATE: 20180829
